FAERS Safety Report 22998154 (Version 2)
Quarter: 2024Q1

REPORT INFORMATION
  Report Type: Spontaneous
  Country: IT (occurrence: IT)
  Receive Date: 20230928
  Receipt Date: 20240301
  Transmission Date: 20240410
  Serious: Yes (Other)
  Sender: FDA-Public Use
  Company Number: None

PATIENT
  Age: 68 Year
  Sex: Male

DRUGS (5)
  1. MEMANTINE [Suspect]
     Active Substance: MEMANTINE
     Indication: Senile dementia
     Dosage: DOSAGE TEXT: 10 MG
     Route: 065
  2. RANEXA [Concomitant]
     Active Substance: RANOLAZINE
     Indication: Product used for unknown indication
  3. MIRTAZAPINE [Suspect]
     Active Substance: MIRTAZAPINE
     Indication: Depression
     Dosage: DOSAGE TEXT: 30 MG
     Route: 065
  4. PLAVIX [Concomitant]
     Active Substance: CLOPIDOGREL BISULFATE
     Indication: Product used for unknown indication
  5. QUETIAPINE [Suspect]
     Active Substance: QUETIAPINE
     Indication: Senile dementia
     Dosage: DOSAGE TEXT: 25 MG
     Route: 065

REACTIONS (1)
  - Syncope [Recovered/Resolved]

NARRATIVE: CASE EVENT DATE: 20230710
